FAERS Safety Report 10194849 (Version 1)
Quarter: 2014Q2

REPORT INFORMATION
  Report Type: Spontaneous
  Country: FR (occurrence: FR)
  Receive Date: 20140526
  Receipt Date: 20140526
  Transmission Date: 20141212
  Serious: Yes (Death)
  Sender: FDA-Public Use
  Company Number: FR-009507513-1405FRA009032

PATIENT
  Age: 66 Year
  Sex: Male

DRUGS (1)
  1. COZAAR 50 MG, COMPRIM? PELLICUL? [Suspect]
     Dosage: 50 MG, BID

REACTIONS (1)
  - Death [Fatal]
